FAERS Safety Report 18463991 (Version 3)
Quarter: 2020Q4

REPORT INFORMATION
  Report Type: Spontaneous
  Country: US (occurrence: US)
  Receive Date: 20201104
  Receipt Date: 20201208
  Transmission Date: 20210114
  Serious: No
  Sender: FDA-Public Use
  Company Number: US-JNJFOC-20201051662

PATIENT

DRUGS (12)
  1. INVEGA TRINZA [Suspect]
     Active Substance: PALIPERIDONE PALMITATE
  2. INVEGA TRINZA [Suspect]
     Active Substance: PALIPERIDONE PALMITATE
  3. INVEGA TRINZA [Suspect]
     Active Substance: PALIPERIDONE PALMITATE
  4. INVEGA TRINZA [Suspect]
     Active Substance: PALIPERIDONE PALMITATE
  5. INVEGA TRINZA [Suspect]
     Active Substance: PALIPERIDONE PALMITATE
  6. INVEGA TRINZA [Suspect]
     Active Substance: PALIPERIDONE PALMITATE
     Indication: SCHIZOPHRENIA
     Route: 030
  7. INVEGA TRINZA [Suspect]
     Active Substance: PALIPERIDONE PALMITATE
     Indication: SCHIZOPHRENIA
     Route: 030
  8. INVEGA TRINZA [Suspect]
     Active Substance: PALIPERIDONE PALMITATE
  9. INVEGA TRINZA [Suspect]
     Active Substance: PALIPERIDONE PALMITATE
  10. INVEGA TRINZA [Suspect]
     Active Substance: PALIPERIDONE PALMITATE
  11. INVEGA TRINZA [Suspect]
     Active Substance: PALIPERIDONE PALMITATE
  12. INVEGA TRINZA [Suspect]
     Active Substance: PALIPERIDONE PALMITATE

REACTIONS (3)
  - Device issue [Unknown]
  - Needle issue [Unknown]
  - Incorrect dose administered [Unknown]
